FAERS Safety Report 8549582-9 (Version None)
Quarter: 2012Q3

REPORT INFORMATION
  Report Type: 
  Country: None (occurrence: None)
  Receive Date: 20120730
  Receipt Date: 20120719
  Transmission Date: 20120928
  Serious: Yes (Hospitalization)
  Sender: FDA-Public Use
  Company Number: US-INCYTE CORPORATION-2012IN000600

PATIENT
  Sex: Female
  Weight: 59.32 kg

DRUGS (12)
  1. JAKAFI [Suspect]
     Indication: POLYCYTHAEMIA VERA
     Dosage: 20 MG, BID
     Route: 048
     Dates: start: 20120517
  2. COLCRYS [Concomitant]
     Dosage: UNK
  3. SPIRONOLACTONE [Concomitant]
     Dosage: 50 MG, QD
  4. JAKAFI [Suspect]
     Indication: MYELOFIBROSIS
     Dosage: 20 MG, BID
     Route: 048
     Dates: start: 20120415, end: 20120419
  5. JAKAFI [Suspect]
     Indication: PULMONARY HYPERTENSION
  6. ANAGRELIDE HCL [Concomitant]
     Dosage: UNK
  7. CITALOPRAM HYDROBROMIDE [Concomitant]
     Dosage: 20 MG, QD
  8. REVATIO [Concomitant]
     Dosage: 40 MG, TID
  9. LISINOPRIL [Concomitant]
     Dosage: UNK
  10. FUROSEMIDE [Concomitant]
     Dosage: 20 MG, BID
  11. ASPIRIN [Concomitant]
     Dosage: 81 MG, QD
     Route: 048
  12. CALCIUM CARBONATE W/COLECALCIFEROL [Concomitant]
     Dosage: OTC SUPPLEMENT, QD

REACTIONS (3)
  - DYSPNOEA [None]
  - DEHYDRATION [None]
  - URINARY TRACT INFECTION [None]
